FAERS Safety Report 9685999 (Version 1)
Quarter: 2013Q4

REPORT INFORMATION
  Report Type: Spontaneous
  Country: US (occurrence: US)
  Receive Date: 20131113
  Receipt Date: 20131113
  Transmission Date: 20140711
  Serious: No
  Sender: FDA-Public Use
  Company Number: US-ALLERGAN-1304534US

PATIENT
  Age: 87 Year
  Sex: Female

DRUGS (2)
  1. COMBIGAN[R] [Suspect]
     Indication: GLAUCOMA
     Dosage: 2 GTT, BID
     Route: 047
     Dates: start: 2012, end: 2012
  2. MECLIZINE                          /00072801/ [Concomitant]
     Indication: VERTIGO
     Dosage: UNK
     Route: 048

REACTIONS (5)
  - Chest discomfort [Unknown]
  - Epistaxis [Unknown]
  - Headache [Unknown]
  - Photophobia [Unknown]
  - Lacrimation increased [Unknown]
